FAERS Safety Report 12555516 (Version 2)
Quarter: 2016Q3

REPORT INFORMATION
  Report Type: Spontaneous
  Country: AU (occurrence: AU)
  Receive Date: 20160714
  Receipt Date: 20160725
  Transmission Date: 20161109
  Serious: Yes (Disabling)
  Sender: FDA-Public Use
  Company Number: AU-009507513-1607AUS004569

PATIENT
  Age: 77 Year
  Sex: Female

DRUGS (3)
  1. RADIOGRAPHIC CONTRAST MEDIUM (UNSPECIFIED) [Suspect]
     Active Substance: UNSPECIFIED INGREDIENT
     Dosage: UNK
     Route: 014
     Dates: start: 201512
  2. CELESTONE CHRONODOSE [Suspect]
     Active Substance: BETAMETHASONE ACETATE\BETAMETHASONE SODIUM PHOSPHATE
     Dosage: UNK
     Route: 014
     Dates: start: 201512
  3. SODIUM CHLORIDE. [Suspect]
     Active Substance: SODIUM CHLORIDE
     Dosage: UNK
     Route: 014

REACTIONS (3)
  - Arthritis infective [Not Recovered/Not Resolved]
  - Product quality issue [Not Recovered/Not Resolved]
  - Scedosporium infection [Not Recovered/Not Resolved]

NARRATIVE: CASE EVENT DATE: 20160115
